FAERS Safety Report 16393017 (Version 4)
Quarter: 2019Q3

REPORT INFORMATION
  Report Type: Report from Study
  Country: CO (occurrence: CO)
  Receive Date: 20190605
  Receipt Date: 20190726
  Transmission Date: 20191004
  Serious: Yes (Death, Life-Threatening, Hospitalization, Other)
  Sender: FDA-Public Use
  Company Number: PHHY2018CO001958

PATIENT
  Age: 56 Year
  Sex: Female
  Weight: 58 kg

DRUGS (8)
  1. TASIGNA [Suspect]
     Active Substance: NILOTINIB
     Dosage: 600 MG, QD
     Route: 048
  2. TASIGNA [Suspect]
     Active Substance: NILOTINIB
     Dosage: 900 MG, QD
     Route: 048
  3. TASIGNA [Suspect]
     Active Substance: NILOTINIB
     Indication: CHRONIC MYELOID LEUKAEMIA
     Dosage: 200 MG, BID
     Route: 048
  4. TASIGNA [Suspect]
     Active Substance: NILOTINIB
     Dosage: 400 MG, Q12H
     Route: 048
     Dates: start: 201801
  5. TASIGNA [Suspect]
     Active Substance: NILOTINIB
     Dosage: MEDICATION STARTED SINCE 3 WEEKS AGO
     Route: 065
  6. TASIGNA [Suspect]
     Active Substance: NILOTINIB
     Dosage: 800 MG, QD
     Route: 048
     Dates: end: 20190208
  7. TASIGNA [Suspect]
     Active Substance: NILOTINIB
     Dosage: 200 MG, TID
     Route: 048
     Dates: start: 201712
  8. TASIGNA [Suspect]
     Active Substance: NILOTINIB
     Dosage: 200 MG, BID
     Route: 048

REACTIONS (16)
  - Platelet count decreased [Recovered/Resolved]
  - Gait disturbance [Recovered/Resolved]
  - Chronic myeloid leukaemia [Unknown]
  - Malignant neoplasm progression [Unknown]
  - Chronic myeloid leukaemia recurrent [Unknown]
  - Organ failure [Recovering/Resolving]
  - Brain neoplasm [Unknown]
  - Tinnitus [Unknown]
  - Inappropriate schedule of product administration [Unknown]
  - Death [Fatal]
  - Yellow skin [Recovered/Resolved]
  - Hypoacusis [Unknown]
  - Prescribed overdose [Unknown]
  - Apparent death [Unknown]
  - Balance disorder [Unknown]
  - Malaise [Unknown]

NARRATIVE: CASE EVENT DATE: 20190717
